FAERS Safety Report 9870915 (Version 1)
Quarter: 2014Q1

REPORT INFORMATION
  Report Type: Report from Study
  Country: AR (occurrence: AR)
  Receive Date: 20140205
  Receipt Date: 20140205
  Transmission Date: 20141002
  Serious: Yes (Death, Hospitalization)
  Sender: FDA-Public Use
  Company Number: PHHY2014AR014045

PATIENT
  Age: 96 Year
  Sex: Female

DRUGS (1)
  1. DIOVAN [Suspect]
     Indication: HYPERTENSION
     Dosage: 1 DF OR 1.5 DF (80MG), UKN
     Route: 048

REACTIONS (2)
  - Diabetic hyperglycaemic coma [Fatal]
  - Wrong technique in drug usage process [Unknown]
